FAERS Safety Report 4745751-4 (Version None)
Quarter: 2005Q3

REPORT INFORMATION
  Report Type: 
  Country: None (occurrence: None)
  Receive Date: 20050816
  Receipt Date: 20050526
  Transmission Date: 20060218
  Serious: Yes (Hospitalization, Other)
  Sender: FDA-Public Use
  Company Number: PHEH2005US06142

PATIENT
  Age: 85 Year
  Sex: Female

DRUGS (4)
  1. ZOMETA [Suspect]
     Indication: BREAST CANCER METASTATIC
     Dosage: 4MG QMO
     Route: 042
     Dates: start: 20040615, end: 20041106
  2. MOTRIN [Suspect]
  3. PROCRIT [Concomitant]
     Indication: ANAEMIA
     Dosage: 200MCG
     Dates: start: 20041130
  4. FEMARA [Concomitant]
     Indication: BREAST CANCER
     Dosage: 2.5MG UNK
     Dates: start: 20040615, end: 20050504

REACTIONS (12)
  - ASPARTATE AMINOTRANSFERASE INCREASED [None]
  - BLOOD CALCIUM DECREASED [None]
  - BLOOD CREATININE INCREASED [None]
  - BLOOD LACTATE DEHYDROGENASE INCREASED [None]
  - BLOOD UREA INCREASED [None]
  - CARDIAC FAILURE CONGESTIVE [None]
  - DIALYSIS [None]
  - FATIGUE [None]
  - HAEMOGLOBIN DECREASED [None]
  - PACKED RED BLOOD CELL TRANSFUSION [None]
  - RENAL FAILURE [None]
  - URETERAL STENT INSERTION [None]
